FAERS Safety Report 23243392 (Version 1)
Quarter: 2023Q4

REPORT INFORMATION
  Report Type: Spontaneous
  Country: US (occurrence: US)
  Receive Date: 20231130
  Receipt Date: 20231130
  Transmission Date: 20240109
  Serious: No
  Sender: FDA-Public Use
  Company Number: US-drreddys-LIT/USA/23/0187024

PATIENT
  Age: 67 Year
  Sex: Female

DRUGS (6)
  1. BORTEZOMIB [Suspect]
     Active Substance: BORTEZOMIB
     Indication: Keratopathy
  2. MELPHALAN [Suspect]
     Active Substance: MELPHALAN
     Indication: Keratopathy
  3. LENALIDOMIDE [Suspect]
     Active Substance: LENALIDOMIDE
     Indication: Keratopathy
  4. PREDNISONE [Suspect]
     Active Substance: PREDNISONE
     Indication: Keratopathy
  5. DARATUMUMAB [Suspect]
     Active Substance: DARATUMUMAB
     Indication: Keratopathy
  6. DEXAMETHASONE [Suspect]
     Active Substance: DEXAMETHASONE
     Indication: Keratopathy

REACTIONS (3)
  - Fatigue [Unknown]
  - Nausea [Unknown]
  - Off label use [Unknown]
